FAERS Safety Report 15002143 (Version 3)
Quarter: 2018Q3

REPORT INFORMATION
  Report Type: Report from Study
  Country: TW (occurrence: TW)
  Receive Date: 20180612
  Receipt Date: 20180919
  Transmission Date: 20181010
  Serious: Yes (Hospitalization, Other)
  Sender: FDA-Public Use
  Company Number: TW-TAKEDA-2018TUS019268

PATIENT
  Age: 28 Year
  Sex: Female

DRUGS (1)
  1. VEDOLIZUMAB [Suspect]
     Active Substance: VEDOLIZUMAB
     Indication: CROHN^S DISEASE
     Dosage: 300 MG, UNK
     Route: 042
     Dates: start: 20170905, end: 20180825

REACTIONS (12)
  - Wound drainage [Unknown]
  - Abdominal pain [Unknown]
  - Pyrexia [Unknown]
  - Hepatic cyst [Unknown]
  - Adnexa uteri mass [Unknown]
  - Hypophagia [Unknown]
  - Weight decreased [Unknown]
  - Crohn^s disease [Unknown]
  - Intestinal resection [Unknown]
  - Hepatic steatosis [Unknown]
  - Intestinal perforation [Unknown]
  - Pelvic fluid collection [Unknown]

NARRATIVE: CASE EVENT DATE: 201804
